FAERS Safety Report 9709391 (Version 1)
Quarter: 2013Q4

REPORT INFORMATION
  Report Type: Spontaneous
  Country: US (occurrence: US)
  Receive Date: 20131126
  Receipt Date: 20131126
  Transmission Date: 20140711
  Serious: No
  Sender: FDA-Public Use
  Company Number: US-009507513-1311USA009477

PATIENT
  Sex: Female

DRUGS (1)
  1. JANUMET [Suspect]
     Dosage: HALF OF TABLET IN THE MORNING THE OTHER HALF OF THE TABLET AT LUNCH TIME,A WHOLE TABLET IN EVENING
     Route: 048
     Dates: start: 2008

REACTIONS (3)
  - Wrong technique in drug usage process [Unknown]
  - Inappropriate schedule of drug administration [Unknown]
  - No adverse event [Unknown]
